FAERS Safety Report 7756999-9 (Version None)
Quarter: 2011Q3

REPORT INFORMATION
  Report Type: 
  Country: None (occurrence: None)
  Receive Date: 20110916
  Receipt Date: 20110916
  Transmission Date: 20111222
  Serious: No
  Sender: FDA-Public Use
  Company Number: None

PATIENT
  Age: 35 Year
  Sex: Female
  Weight: 111.13 kg

DRUGS (1)
  1. NEXIUM [Suspect]
     Indication: HELICOBACTER INFECTION
     Dosage: ONE PILL
     Route: 048

REACTIONS (9)
  - BONE PAIN [None]
  - DYSPEPSIA [None]
  - SKIN BURNING SENSATION [None]
  - SENSATION OF FOREIGN BODY [None]
  - OEDEMA PERIPHERAL [None]
  - PRURITUS [None]
  - MALAISE [None]
  - OESOPHAGEAL PAIN [None]
  - RASH MACULAR [None]
